FAERS Safety Report 8075527-4 (Version None)
Quarter: 2012Q1

REPORT INFORMATION
  Report Type: 
  Country: None (occurrence: None)
  Receive Date: 20120127
  Receipt Date: 20120119
  Transmission Date: 20120608
  Serious: Yes (Other)
  Sender: FDA-Public Use
  Company Number: IT-PFIZER INC-2012016939

PATIENT
  Sex: Male

DRUGS (1)
  1. AMIODARONE HCL [Suspect]

REACTIONS (3)
  - HYPERHIDROSIS [None]
  - SYNCOPE [None]
  - SINUS BRADYCARDIA [None]
